FAERS Safety Report 13352968 (Version 1)
Quarter: 2017Q1

REPORT INFORMATION
  Report Type: Spontaneous
  Country: US (occurrence: US)
  Receive Date: 20170321
  Receipt Date: 20170321
  Transmission Date: 20170429
  Serious: Yes (Other)
  Sender: FDA-Public Use
  Company Number: US-AUROBINDO-AUR-APL-2016-15380

PATIENT
  Age: 58 Year
  Sex: Male

DRUGS (16)
  1. RIBAVIRIN. [Interacting]
     Active Substance: RIBAVIRIN
     Dosage: DOSE WAS DECREASED TO 600MG EVERY MORNING AND 400MG EVERY EVENING
  2. WARFARIN [Interacting]
     Active Substance: WARFARIN
     Dosage: 7.5MG FOR TWO DAYS A WEEK (TOTAL WEEKLY DOSE OF 40MG)
     Route: 065
  3. ACETAMINOPHEN. [Concomitant]
     Active Substance: ACETAMINOPHEN
     Indication: PAIN
     Dosage: 1000 MG, TWO TIMES A DAY
     Route: 048
  4. DASABUVIR [Interacting]
     Active Substance: DASABUVIR
     Indication: PRODUCT USED FOR UNKNOWN INDICATION
     Dosage: UNK
     Route: 065
  5. WARFARIN [Interacting]
     Active Substance: WARFARIN
     Indication: CEREBROVASCULAR ACCIDENT
     Dosage: UNK, 125% TOTAL INCREASE
     Route: 065
     Dates: start: 2009
  6. WARFARIN [Interacting]
     Active Substance: WARFARIN
     Dosage: 5MG FOR FIVE DAYS A WEEK
     Route: 065
  7. WARFARIN [Interacting]
     Active Substance: WARFARIN
     Dosage: INCREASED BY 18.8%
  8. WARFARIN [Interacting]
     Active Substance: WARFARIN
     Dosage: WARFARIN DOSE WAS INCREASED BY 27.3% (70 MG/WEEK)
     Route: 065
  9. PANTOPRAZOLE [Concomitant]
     Active Substance: PANTOPRAZOLE SODIUM
     Indication: PRODUCT USED FOR UNKNOWN INDICATION
     Dosage: 20 MG, DAILY
     Route: 048
  10. NITROGLYCERIN. [Concomitant]
     Active Substance: NITROGLYCERIN
     Indication: CHEST PAIN
     Dosage: 0.4 MG, UNK
     Route: 060
  11. RIBAVIRIN. [Suspect]
     Active Substance: RIBAVIRIN
     Indication: HEPATITIS C
     Dosage: 600 MG, TWO TIMES A DAY
     Route: 065
  12. LISINOPRIL. [Concomitant]
     Active Substance: LISINOPRIL
     Indication: PRODUCT USED FOR UNKNOWN INDICATION
     Dosage: 2.5 MG, DAILY
     Route: 048
  13. MULTIVITAMIN                       /00097801/ [Concomitant]
     Active Substance: VITAMINS
     Indication: PRODUCT USED FOR UNKNOWN INDICATION
     Dosage: UNK, DAILY
     Route: 048
  14. WARFARIN [Interacting]
     Active Substance: WARFARIN
     Dosage: DOSE WAS FURTHER INCREASED BY 15.8% (55 MG/WEEK)
     Route: 065
  15. WARFARIN [Interacting]
     Active Substance: WARFARIN
     Dosage: DOSE WAS INCREASED THREE SEPARATE TIMES OVER THREE WEEKS TO 75, 80 AND 90 MG/WEEK
     Route: 065
  16. DILTIAZEM. [Concomitant]
     Active Substance: DILTIAZEM
     Indication: PRODUCT USED FOR UNKNOWN INDICATION
     Dosage: 120 MG, DAILY
     Route: 048

REACTIONS (6)
  - Drug withdrawal syndrome [Unknown]
  - Anticoagulation drug level below therapeutic [Recovered/Resolved]
  - International normalised ratio increased [Unknown]
  - Haemoglobin decreased [Recovered/Resolved]
  - Haematuria [Unknown]
  - Drug interaction [Unknown]
